FAERS Safety Report 6907881-8 (Version None)
Quarter: 2010Q3

REPORT INFORMATION
  Report Type: 
  Country: None (occurrence: None)
  Receive Date: 20100805
  Receipt Date: 20100722
  Transmission Date: 20110219
  Serious: Yes (Other)
  Sender: FDA-Public Use
  Company Number: PHHY2010DE48898

PATIENT
  Age: 22 Year
  Sex: Male

DRUGS (1)
  1. LAMISIL [Suspect]
     Indication: FUNGAL INFECTION

REACTIONS (5)
  - ECZEMA [None]
  - ERYTHEMA MULTIFORME [None]
  - MYCOTIC ALLERGY [None]
  - PRURITUS [None]
  - SKIN LESION [None]
